FAERS Safety Report 20063264 (Version 1)
Quarter: 2021Q4

REPORT INFORMATION
  Report Type: Spontaneous
  Country: BR (occurrence: BR)
  Receive Date: 20211112
  Receipt Date: 20211112
  Transmission Date: 20220303
  Serious: Yes (Other)
  Sender: FDA-Public Use
  Company Number: None

PATIENT
  Age: 68 Year
  Sex: Female
  Weight: 86 kg

DRUGS (10)
  1. PREDNISONE [Suspect]
     Active Substance: PREDNISONE
     Dosage: 5 MILLIGRAM,TWO TIMES A DAY
  2. MONTELUKAST SODIUM [Suspect]
     Active Substance: MONTELUKAST SODIUM
     Dosage: 10 MILLIGRAM,ONE DAY
  3. ELIQUIS [Suspect]
     Active Substance: APIXABAN
     Dosage: 5 MILLIGRAM,TWO TIMES A DAY
  4. SYMBICORT [Suspect]
     Active Substance: BUDESONIDE\FORMOTEROL FUMARATE DIHYDRATE
     Dosage: UNK
  5. BAMIFYLLINE HYDROCHLORIDE [Suspect]
     Active Substance: BAMIFYLLINE HYDROCHLORIDE
     Dosage: 300 MILLIGRAM,TWO TIMES A DAY
  6. ALBUTEROL [Suspect]
     Active Substance: ALBUTEROL
     Dosage: MANY TIMES A DAY
  7. TRELEGY ELLIPTA [Suspect]
     Active Substance: FLUTICASONE FUROATE\UMECLIDINIUM BROMIDE\VILANTEROL TRIFENATATE
     Dosage: ONE DAY
  8. AZITHROMYCIN [Suspect]
     Active Substance: AZITHROMYCIN
     Indication: Asthma
     Dosage: 500 MILLIGRAM
     Dates: start: 2020
  9. NUCALA [Suspect]
     Active Substance: MEPOLIZUMAB
     Indication: Asthma
     Dosage: 100 MILLIGRAM
     Route: 042
     Dates: start: 20210106
  10. ASTRAZENECA COVID-19 VACCINE [Concomitant]
     Active Substance: AZD-1222
     Indication: Prophylaxis
     Dosage: UNK
     Dates: start: 20210405

REACTIONS (12)
  - Asthmatic crisis [Recovering/Resolving]
  - Pulmonary thrombosis [Recovering/Resolving]
  - Thrombosis [Recovering/Resolving]
  - Dyspnoea [Recovering/Resolving]
  - Traumatic lung injury [Recovering/Resolving]
  - Drug ineffective [Unknown]
  - Malaise [Recovering/Resolving]
  - Social problem [Unknown]
  - Respiration abnormal [Unknown]
  - Dysphonia [Recovering/Resolving]
  - Throat irritation [Recovering/Resolving]
  - Incorrect product administration duration [Unknown]

NARRATIVE: CASE EVENT DATE: 20201201
